FAERS Safety Report 9204103 (Version 2)
Quarter: 2014Q1

REPORT INFORMATION
  Report Type: Spontaneous
  Country: GB (occurrence: GB)
  Receive Date: 20130402
  Receipt Date: 20140122
  Transmission Date: 20141002
  Serious: Yes (Hospitalization)
  Sender: FDA-Public Use
  Company Number: GB-PFIZER INC-2013098630

PATIENT
  Age: 23 Year
  Sex: Male

DRUGS (3)
  1. NEURONTIN [Suspect]
     Indication: PARTIAL SEIZURES
     Dosage: 1500 MG, 1X/DAY
     Dates: start: 201204
  2. NEURONTIN [Suspect]
     Dosage: 300 MG, WEEKLY
     Dates: end: 20130127
  3. OXCARBAZEPINE [Concomitant]
     Dosage: UNK
     Dates: start: 201212, end: 20130127

REACTIONS (9)
  - Withdrawal syndrome [Recovering/Resolving]
  - Insomnia [Recovering/Resolving]
  - Hyperhidrosis [Recovering/Resolving]
  - Palpitations [Recovering/Resolving]
  - Anxiety [Not Recovered/Not Resolved]
  - Nervousness [Unknown]
  - Mood altered [Unknown]
  - Disturbance in attention [Recovering/Resolving]
  - Drug ineffective [Unknown]
